FAERS Safety Report 9333393 (Version 1)
Quarter: 2013Q2

REPORT INFORMATION
  Report Type: Spontaneous
  Country: US (occurrence: US)
  Receive Date: 20130606
  Receipt Date: 20130606
  Transmission Date: 20140414
  Serious: No
  Sender: FDA-Public Use
  Company Number: US-GLAXOSMITHKLINE-A0990440A

PATIENT
  Age: 17 Year
  Sex: Male

DRUGS (2)
  1. LAMICTAL [Suspect]
     Indication: CONVULSION
     Dosage: 50MG TWICE PER DAY
     Route: 048
     Dates: start: 20120724, end: 20120816
  2. VITAMIN D [Concomitant]

REACTIONS (2)
  - Rash generalised [Recovering/Resolving]
  - Rash maculo-papular [Unknown]
